FAERS Safety Report 23403240 (Version 2)
Quarter: 2024Q1

REPORT INFORMATION
  Report Type: Report from Study
  Country: US (occurrence: US)
  Receive Date: 20240116
  Receipt Date: 20240327
  Transmission Date: 20240410
  Serious: Yes (Other)
  Sender: FDA-Public Use
  Company Number: US-ABBVIE-5587928

PATIENT
  Age: 76 Year
  Sex: Male
  Weight: 93.893 kg

DRUGS (2)
  1. RINVOQ [Suspect]
     Active Substance: UPADACITINIB
     Indication: Rheumatoid arthritis
     Dosage: FORM STRENGTH: 15 MILLIGRAM
     Route: 048
     Dates: start: 20221022
  2. RINVOQ [Suspect]
     Active Substance: UPADACITINIB
     Indication: Rheumatoid arthritis
     Route: 048
     Dates: start: 20220808

REACTIONS (5)
  - Prostatic cyst [Recovered/Resolved]
  - Prostatomegaly [Recovered/Resolved]
  - Inflammation [Unknown]
  - Prostate cancer [Unknown]
  - Abscess [Unknown]

NARRATIVE: CASE EVENT DATE: 20231211
